FAERS Safety Report 8138104-2 (Version None)
Quarter: 2012Q1

REPORT INFORMATION
  Report Type: 
  Country: None (occurrence: None)
  Receive Date: 20120215
  Receipt Date: 20120215
  Transmission Date: 20120608
  Serious: Yes (Hospitalization)
  Sender: FDA-Public Use
  Company Number: None

PATIENT
  Age: 41 Year
  Sex: Female
  Weight: 53.523 kg

DRUGS (1)
  1. MUCINEX DM [Suspect]
     Indication: COUGH
     Dosage: ONE PILL
     Dates: start: 20120212, end: 20120212

REACTIONS (6)
  - DIARRHOEA [None]
  - FEELING HOT [None]
  - DISORIENTATION [None]
  - CHILLS [None]
  - PALPITATIONS [None]
  - NAUSEA [None]
